FAERS Safety Report 13245818 (Version 1)
Quarter: 2017Q1

REPORT INFORMATION
  Report Type: Spontaneous
  Country: CN (occurrence: CN)
  Receive Date: 20170217
  Receipt Date: 20170217
  Transmission Date: 20170428
  Serious: Yes (Death)
  Sender: FDA-Public Use
  Company Number: CN-CELGENEUS-CHN-2017021648

PATIENT
  Age: 58 Year
  Sex: Male
  Weight: 75 kg

DRUGS (6)
  1. ABRAXANE [Suspect]
     Active Substance: PACLITAXEL
     Indication: OFF LABEL USE
     Route: 041
     Dates: start: 20170201, end: 20170201
  2. TEGAFUR [Concomitant]
     Active Substance: TEGAFUR
     Indication: LUNG ADENOCARCINOMA
     Route: 065
     Dates: start: 20170115
  3. GIMERACIL [Concomitant]
     Active Substance: GIMERACIL
     Indication: LUNG ADENOCARCINOMA
     Route: 065
     Dates: start: 20170115
  4. ABRAXANE [Suspect]
     Active Substance: PACLITAXEL
     Indication: LUNG ADENOCARCINOMA
     Route: 041
     Dates: start: 20170115, end: 20170115
  5. ENDU [Concomitant]
     Indication: LUNG ADENOCARCINOMA
     Route: 065
     Dates: start: 20170115
  6. OTERACIL POTASSIUM [Concomitant]
     Active Substance: OTERACIL POTASSIUM
     Indication: LUNG ADENOCARCINOMA
     Route: 065
     Dates: start: 20170115

REACTIONS (1)
  - Neurotoxicity [Fatal]

NARRATIVE: CASE EVENT DATE: 20170115
